FAERS Safety Report 17019736 (Version 2)
Quarter: 2020Q1

REPORT INFORMATION
  Report Type: Report from Study
  Country: US (occurrence: US)
  Receive Date: 20191112
  Receipt Date: 20200114
  Transmission Date: 20200409
  Serious: Yes (Death, Other)
  Sender: FDA-Public Use
  Company Number: US-BEH-2019109239

PATIENT
  Age: 71 Year
  Sex: Male

DRUGS (1)
  1. HUMAN IMMUNOGLOBULIN (GENERIC) [Suspect]
     Active Substance: HUMAN IMMUNOGLOBULIN G
     Indication: AUTOANTIBODY POSITIVE
     Route: 042

REACTIONS (2)
  - Drug ineffective for unapproved indication [Fatal]
  - Product use in unapproved indication [Fatal]
